FAERS Safety Report 7942591-X (Version None)
Quarter: 2011Q4

REPORT INFORMATION
  Report Type: 
  Country: None (occurrence: None)
  Receive Date: 20111128
  Receipt Date: 20111121
  Transmission Date: 20120403
  Serious: Yes (Other)
  Sender: FDA-Public Use
  Company Number: ES-GLAXOSMITHKLINE-B0765313A

PATIENT
  Age: 22 Year
  Sex: Male

DRUGS (2)
  1. GANCICLOVIR [Concomitant]
     Indication: HERPES ZOSTER
     Route: 065
  2. PAZOPANIB [Suspect]
     Indication: SYNOVIAL SARCOMA
     Dosage: 800MG PER DAY
     Route: 048
     Dates: start: 20111102, end: 20111110

REACTIONS (10)
  - VOMITING [None]
  - TRANSAMINASES INCREASED [None]
  - NAUSEA [None]
  - CHOLECYSTITIS [None]
  - ASTHENIA [None]
  - THROMBOCYTOPENIA [None]
  - DIARRHOEA [None]
  - RECTAL HAEMORRHAGE [None]
  - HEPATIC FAILURE [None]
  - MUCOSAL INFLAMMATION [None]
